FAERS Safety Report 17329966 (Version 1)
Quarter: 2020Q1

REPORT INFORMATION
  Report Type: Report from Study
  Country: US (occurrence: US)
  Receive Date: 20200127
  Receipt Date: 20200127
  Transmission Date: 20200409
  Serious: Yes (Other)
  Sender: FDA-Public Use
  Company Number: US-MYLANLABS-2018M1091008

PATIENT
  Age: 28 Year
  Sex: Female

DRUGS (63)
  1. TOBI PODHALER [Suspect]
     Active Substance: TOBRAMYCIN
     Dosage: UNK UNK, BID (112 OT)
     Route: 055
     Dates: start: 20160611, end: 20160808
  2. TOBI PODHALER [Suspect]
     Active Substance: TOBRAMYCIN
     Dosage: UNK UNK, BID (112 OT)
     Route: 055
     Dates: start: 20161031, end: 20161128
  3. CAYSTON [Suspect]
     Active Substance: AZTREONAM
     Indication: PRODUCT USED FOR UNKNOWN INDICATION
     Dosage: UNK, TID (75 OT)
     Route: 065
     Dates: start: 20170621, end: 20170720
  4. CALCIUM CARBONATE. [Concomitant]
     Active Substance: CALCIUM CARBONATE
     Indication: SUPPLEMENTATION THERAPY
     Dosage: UNK
     Route: 065
     Dates: start: 20150531
  5. CIPRO [Concomitant]
     Active Substance: CIPROFLOXACIN HYDROCHLORIDE
     Dosage: UNK
     Route: 065
     Dates: start: 20160707, end: 20160721
  6. CIPRO [Concomitant]
     Active Substance: CIPROFLOXACIN HYDROCHLORIDE
     Dosage: UNK
     Route: 065
     Dates: start: 20170127, end: 20170210
  7. DIFLUCAN [Concomitant]
     Active Substance: FLUCONAZOLE
     Dosage: UNK
     Route: 065
     Dates: start: 20170512, end: 20170522
  8. FLUCONAZOLE. [Concomitant]
     Active Substance: FLUCONAZOLE
     Indication: PROPHYLAXIS
     Dosage: UNK
     Route: 065
     Dates: start: 20120416
  9. MEPHYTON [Concomitant]
     Active Substance: PHYTONADIONE
     Indication: GASTROINTESTINAL DISORDER
     Dosage: UNK
     Route: 065
     Dates: start: 20150929
  10. MIRENA [Concomitant]
     Active Substance: LEVONORGESTREL
     Indication: CONTRACEPTION
     Dosage: UNK
     Route: 065
     Dates: start: 20161110
  11. PROAIR HFA [Concomitant]
     Active Substance: ALBUTEROL SULFATE
     Indication: CYSTIC FIBROSIS LUNG
     Dosage: UNK
     Route: 065
     Dates: start: 20150226
  12. TAMIFLU [Concomitant]
     Active Substance: OSELTAMIVIR PHOSPHATE
     Dosage: UNK
     Route: 065
     Dates: start: 20170228, end: 20170304
  13. VITAMIN C [Concomitant]
     Active Substance: ASCORBIC ACID
     Indication: SUPPLEMENTATION THERAPY
     Dosage: UNK
     Route: 065
     Dates: start: 20130424
  14. VITAMIN D3 [Concomitant]
     Active Substance: CHOLECALCIFEROL
     Indication: VITAMIN D DEFICIENCY
     Dosage: UNK
     Route: 065
     Dates: start: 20160727
  15. TOBI PODHALER [Suspect]
     Active Substance: TOBRAMYCIN
     Dosage: UNK UNK, BID (112 OT)
     Route: 055
     Dates: start: 20170322, end: 20170418
  16. DIFLUCAN [Concomitant]
     Active Substance: FLUCONAZOLE
     Indication: PROPHYLAXIS
     Dosage: UNK
     Route: 065
     Dates: start: 20161201, end: 20161211
  17. MOXIFLOXACIN. [Concomitant]
     Active Substance: MOXIFLOXACIN
     Indication: PARANASAL SINUS DISCOMFORT
     Dosage: UNK
     Route: 065
     Dates: start: 20170408
  18. TAMIFLU [Concomitant]
     Active Substance: OSELTAMIVIR PHOSPHATE
     Indication: PROPHYLAXIS
     Dosage: UNK
     Route: 065
     Dates: start: 20170223, end: 20170227
  19. TOBI PODHALER [Suspect]
     Active Substance: TOBRAMYCIN
     Dosage: UNK
     Route: 055
     Dates: start: 20180226, end: 20180326
  20. CAYSTON [Suspect]
     Active Substance: AZTREONAM
     Dosage: UNK
     Route: 065
     Dates: start: 20181003, end: 20181031
  21. SODIUM CHLORIDE. [Concomitant]
     Active Substance: SODIUM CHLORIDE
     Indication: CYSTIC FIBROSIS LUNG
     Dosage: UNK
     Route: 065
     Dates: start: 20160108
  22. ZITHROMAX [Concomitant]
     Active Substance: AZITHROMYCIN DIHYDRATE
     Indication: PROPHYLAXIS
     Dosage: UNK
     Route: 065
     Dates: start: 20151218
  23. TOBI PODHALER [Suspect]
     Active Substance: TOBRAMYCIN
     Dosage: UNK UNK, BID (112 OT)
     Route: 055
     Dates: start: 20160526, end: 20160614
  24. TOBI PODHALER [Suspect]
     Active Substance: TOBRAMYCIN
     Dosage: UNK UNK, BID (112 OT)
     Route: 055
     Dates: start: 20170909, end: 20171007
  25. CAYSTON [Suspect]
     Active Substance: AZTREONAM
     Dosage: UNK, TID (75 OT)
     Route: 065
     Dates: start: 20170819, end: 20170908
  26. ALBUTEROL                          /00139501/ [Concomitant]
     Active Substance: ALBUTEROL
     Indication: CYSTIC FIBROSIS LUNG
     Dosage: UNK
     Route: 065
     Dates: start: 20120727
  27. CREON [Concomitant]
     Active Substance: PANCRELIPASE AMYLASE\PANCRELIPASE LIPASE\PANCRELIPASE PROTEASE
     Indication: CYSTIC FIBROSIS
     Dosage: UNK
     Route: 065
     Dates: start: 20141229
  28. MAGNESIUM OXIDE. [Concomitant]
     Active Substance: MAGNESIUM OXIDE
     Indication: SUPPLEMENTATION THERAPY
     Dosage: UNK
     Route: 065
     Dates: start: 20130201
  29. TOBRAMYCIN. [Concomitant]
     Active Substance: TOBRAMYCIN
     Indication: PROPHYLAXIS
     Dosage: UNK
     Route: 065
     Dates: start: 20160516, end: 20160517
  30. TOBRAMYCIN. [Concomitant]
     Active Substance: TOBRAMYCIN
     Dosage: UNK
     Route: 065
     Dates: start: 20160517, end: 20160526
  31. VITAMIN D                          /00107901/ [Concomitant]
     Active Substance: ERGOCALCIFEROL
     Indication: SUPPLEMENTATION THERAPY
     Dosage: UNK
     Route: 065
     Dates: start: 20150521
  32. TOBI PODHALER [Suspect]
     Active Substance: TOBRAMYCIN
     Dosage: UNK UNK, BID (112 OT)
     Route: 055
     Dates: start: 20180106, end: 20180203
  33. PULMOZYME [Concomitant]
     Active Substance: DORNASE ALFA
     Indication: CYSTIC FIBROSIS LUNG
     Route: 065
     Dates: start: 20151104, end: 20160907
  34. TOBI [Concomitant]
     Active Substance: TOBRAMYCIN
     Indication: CYSTIC FIBROSIS
     Dosage: UNK
     Route: 065
     Dates: start: 20160325
  35. TOBI PODHALER [Suspect]
     Active Substance: TOBRAMYCIN
     Indication: CYSTIC FIBROSIS
     Dosage: UNK UNK, BID (112 OT)
     Route: 055
     Dates: start: 20160330, end: 20160428
  36. TOBI PODHALER [Suspect]
     Active Substance: TOBRAMYCIN
     Dosage: UNK UNK, BID (112 OT)
     Route: 055
     Dates: start: 20160905, end: 20161003
  37. TOBI PODHALER [Suspect]
     Active Substance: TOBRAMYCIN
     Dosage: UNK UNK, BID (112 OT)
     Route: 055
     Dates: start: 20161215, end: 20170123
  38. TOBI PODHALER [Suspect]
     Active Substance: TOBRAMYCIN
     Dosage: UNK UNK, BID (112 OT)
     Route: 055
     Dates: start: 20170721, end: 20170818
  39. CAMRESE [Concomitant]
     Active Substance: ETHINYL ESTRADIOL\LEVONORGESTREL
     Indication: CYSTIC FIBROSIS
     Route: 065
     Dates: start: 20150116, end: 20160512
  40. CIPRO [Concomitant]
     Active Substance: CIPROFLOXACIN HYDROCHLORIDE
     Indication: INFECTIVE PULMONARY EXACERBATION OF CYSTIC FIBROSIS
     Dosage: UNK
     Route: 065
     Dates: start: 20160427, end: 20160512
  41. DIFLUCAN [Concomitant]
     Active Substance: FLUCONAZOLE
     Indication: COUGH
     Dosage: UNK
     Route: 065
     Dates: start: 20160601, end: 20160608
  42. PROBIOTICS                         /07325001/ [Concomitant]
     Active Substance: BIFIDOBACTERIUM LONGUM\LACTOBACILLUS ACIDOPHILUS\LACTOBACILLUS RHAMNOSUS
     Dosage: UNK
     Route: 065
     Dates: start: 20170512, end: 20170522
  43. PSEUDOEPHEDRINE. [Concomitant]
     Active Substance: PSEUDOEPHEDRINE HYDROCHLORIDE
     Indication: PARANASAL SINUS DISCOMFORT
     Dosage: UNK
     Route: 065
     Dates: start: 20170331, end: 20170402
  44. TAMIFLU [Concomitant]
     Active Substance: OSELTAMIVIR PHOSPHATE
     Dosage: UNK
     Route: 065
     Dates: start: 20180124, end: 20180207
  45. TOBRAMYCIN. [Concomitant]
     Active Substance: TOBRAMYCIN
     Indication: INFECTIVE PULMONARY EXACERBATION OF CYSTIC FIBROSIS
     Dosage: UNK
     Route: 065
     Dates: start: 20160512, end: 20160515
  46. TOBI PODHALER [Suspect]
     Active Substance: TOBRAMYCIN
     Dosage: UNK UNK, BID (112 OT)
     Route: 055
     Dates: start: 20170127, end: 20170220
  47. CAYSTON [Suspect]
     Active Substance: AZTREONAM
     Dosage: UNK, TID (75 OT)
     Route: 065
     Dates: start: 20171008, end: 20171108
  48. ADVAIR HFA [Concomitant]
     Active Substance: FLUTICASONE PROPIONATE\SALMETEROL XINAFOATE
     Indication: CYSTIC FIBROSIS LUNG
     Dosage: UNK
     Route: 065
     Dates: start: 20150514
  49. NOVOLOG [Concomitant]
     Active Substance: INSULIN ASPART
     Indication: CYSTIC FIBROSIS RELATED DIABETES
     Dosage: UNK
     Route: 065
     Dates: start: 20130424
  50. PARAGARD T 380A [Concomitant]
     Active Substance: COPPER
     Indication: CONTRACEPTION
     Route: 065
     Dates: start: 20160201, end: 20161109
  51. TOBRAMYCIN. [Concomitant]
     Active Substance: TOBRAMYCIN
     Dosage: UNK
     Route: 065
     Dates: start: 20161201, end: 20161211
  52. XANAX [Concomitant]
     Active Substance: ALPRAZOLAM
     Indication: PROPHYLAXIS
     Dosage: UNK
     Route: 065
     Dates: start: 20150817
  53. TOBI PODHALER [Suspect]
     Active Substance: TOBRAMYCIN
     Dosage: UNK UNK, BID (112 OT)
     Route: 055
     Dates: start: 20170524, end: 20170621
  54. TOBI PODHALER [Suspect]
     Active Substance: TOBRAMYCIN
     Dosage: UNK UNK, BID (112 OT)
     Route: 055
     Dates: start: 20171109, end: 20171207
  55. CAYSTON [Suspect]
     Active Substance: AZTREONAM
     Dosage: UNK, TID (75 OT)
     Route: 065
     Dates: start: 20180204
  56. ALBUTEROL                          /00139501/ [Concomitant]
     Active Substance: ALBUTEROL
     Indication: CYSTIC FIBROSIS
  57. K-DUR [Concomitant]
     Active Substance: POTASSIUM CHLORIDE
     Indication: SUPPLEMENTATION THERAPY
     Dosage: UNK
     Route: 065
     Dates: start: 20141031
  58. MOTRIN [Concomitant]
     Active Substance: IBUPROFEN
     Indication: CYSTIC FIBROSIS LUNG
     Dosage: UNK
     Route: 065
     Dates: start: 20130201
  59. ORKAMBI [Concomitant]
     Active Substance: IVACAFTOR\LUMACAFTOR
     Indication: CYSTIC FIBROSIS LUNG
     Dosage: UNK
     Route: 065
     Dates: start: 20160211
  60. PROBIOTICS                         /07325001/ [Concomitant]
     Active Substance: BIFIDOBACTERIUM LONGUM\LACTOBACILLUS ACIDOPHILUS\LACTOBACILLUS RHAMNOSUS
     Indication: PROPHYLAXIS
     Dosage: UNK
     Route: 065
     Dates: start: 20160512, end: 20160526
  61. PROBIOTICS                         /07325001/ [Concomitant]
     Active Substance: BIFIDOBACTERIUM LONGUM\LACTOBACILLUS ACIDOPHILUS\LACTOBACILLUS RHAMNOSUS
     Indication: SUPPLEMENTATION THERAPY
     Dosage: UNK
     Route: 065
     Dates: start: 20161201, end: 20161211
  62. PULMOZYME [Concomitant]
     Active Substance: DORNASE ALFA
     Indication: INFECTIVE PULMONARY EXACERBATION OF CYSTIC FIBROSIS
     Dosage: UNK
     Route: 065
     Dates: start: 20160907
  63. TOBRAMYCIN. [Concomitant]
     Active Substance: TOBRAMYCIN
     Dosage: UNK
     Route: 065
     Dates: start: 20170512, end: 20170522

REACTIONS (5)
  - Infective pulmonary exacerbation of cystic fibrosis [Unknown]
  - Haemoptysis [Recovered/Resolved]
  - Hypertension [Unknown]
  - Cough [Recovered/Resolved]
  - Headache [Recovered/Resolved]

NARRATIVE: CASE EVENT DATE: 20160419
